FAERS Safety Report 16266126 (Version 1)
Quarter: 2019Q2

REPORT INFORMATION
  Report Type: Spontaneous
  Country: FR (occurrence: FR)
  Receive Date: 20190502
  Receipt Date: 20190502
  Transmission Date: 20190711
  Serious: Yes (Other)
  Sender: FDA-Public Use
  Company Number: FR-PFIZER INC-2019183235

PATIENT
  Age: 80 Year
  Sex: Male
  Weight: 89 kg

DRUGS (2)
  1. CARBOPLATIN HOSPIRA [Concomitant]
     Active Substance: CARBOPLATIN
     Dosage: UNK
  2. PACLITAXEL HOSPIRA [Suspect]
     Active Substance: PACLITAXEL
     Indication: LUNG ADENOCARCINOMA
     Dosage: 180 MG, CYCLIC
     Route: 042
     Dates: start: 20180905, end: 20180905

REACTIONS (1)
  - Loss of consciousness [Recovered/Resolved]

NARRATIVE: CASE EVENT DATE: 20180905
